FAERS Safety Report 6841919-1 (Version None)
Quarter: 2010Q3

REPORT INFORMATION
  Report Type: 
  Country: None (occurrence: None)
  Receive Date: 20100714
  Receipt Date: 20070716
  Transmission Date: 20110219
  Serious: No
  Sender: FDA-Public Use
  Company Number: US-PFIZER INC-2007060303

PATIENT
  Sex: Female
  Weight: 74.1 kg

DRUGS (6)
  1. CHANTIX [Suspect]
     Indication: SMOKING CESSATION THERAPY
     Dates: start: 20070702
  2. LITHIUM [Concomitant]
  3. RISPERDAL [Concomitant]
  4. ZOLOFT [Concomitant]
  5. KLONOPIN [Concomitant]
  6. BC POWDER [Concomitant]

REACTIONS (3)
  - GASTRIC DISORDER [None]
  - MALAISE [None]
  - NAUSEA [None]
